FAERS Safety Report 9241382 (Version 1)
Quarter: 2013Q1

REPORT INFORMATION
  Report Type: Spontaneous
  Country: US (occurrence: None)
  Receive Date: 20121114
  Receipt Date: 20121114
  Transmission Date: 20140127
  Serious: Yes (Life-Threatening, Hospitalization, Disabling)
  Sender: FDA-Public Use
  Company Number: 2012-002876

PATIENT
  Age: 41 Year
  Sex: Female

DRUGS (2)
  1. LO LOESTRIN FE [Suspect]
     Indication: CONTRACEPTION
     Route: 048
     Dates: start: 201205, end: 20120706
  2. LISINOPRIL (LISINOPRIL) [Concomitant]

REACTIONS (11)
  - Pulmonary embolism [None]
  - Pain in extremity [None]
  - Oedema peripheral [None]
  - Thrombophlebitis superficial [None]
  - Musculoskeletal pain [None]
  - Pleurisy [None]
  - Pulmonary infarction [None]
  - Pleural effusion [None]
  - Painful respiration [None]
  - White blood cell count increased [None]
  - Haemothorax [None]
